FAERS Safety Report 8494083-X (Version None)
Quarter: 2012Q2

REPORT INFORMATION
  Report Type: 
  Country: None (occurrence: None)
  Receive Date: 20120629
  Receipt Date: 20120629
  Transmission Date: 20120825
  Serious: Yes (Other)
  Sender: FDA-Public Use
  Company Number: None

PATIENT
  Age: 34 Year
  Sex: Female
  Weight: 117 kg

DRUGS (1)
  1. CIPROFLOXACIN [Suspect]
     Indication: NEUTROPENIA
     Dosage: 500 MG Q12H PO
     Route: 048

REACTIONS (4)
  - RASH PRURITIC [None]
  - ERYTHEMA [None]
  - GRAFT VERSUS HOST DISEASE [None]
  - RASH MACULAR [None]
